FAERS Safety Report 5264654-2 (Version None)
Quarter: 2007Q1

REPORT INFORMATION
  Report Type: 
  Country: None (occurrence: None)
  Receive Date: 20070314
  Receipt Date: 20070306
  Transmission Date: 20070707
  Serious: Yes (Hospitalization)
  Sender: FDA-Public Use
  Company Number: US-JNJFOC-20070301849

PATIENT
  Sex: Male
  Weight: 188.7 kg

DRUGS (2)
  1. DURAGESIC-100 [Suspect]
     Indication: BACK PAIN
     Route: 062
  2. MORPHINE [Concomitant]
     Indication: BREAKTHROUGH PAIN
     Route: 048

REACTIONS (4)
  - ARTHRALGIA [None]
  - BACK DISORDER [None]
  - WEIGHT DECREASED [None]
  - WRONG TECHNIQUE IN DRUG USAGE PROCESS [None]
